FAERS Safety Report 7769633-9 (Version None)
Quarter: 2011Q3

REPORT INFORMATION
  Report Type: 
  Country: None (occurrence: None)
  Receive Date: 20110922
  Receipt Date: 20101214
  Transmission Date: 20111222
  Serious: No
  Sender: FDA-Public Use
  Company Number: US-ASTRAZENECA-2010SE55247

PATIENT
  Age: 34 Year
  Sex: Male

DRUGS (1)
  1. SEROQUEL [Suspect]
     Indication: PSYCHOTIC DISORDER
     Dosage: 50MG IN AM,50MG IN AFERNOON AND 200MG HS
     Route: 048
     Dates: start: 20101005

REACTIONS (3)
  - INSOMNIA [None]
  - DYSURIA [None]
  - IRRITABILITY [None]
